FAERS Safety Report 6446277-2 (Version None)
Quarter: 2009Q4

REPORT INFORMATION
  Report Type: 
  Country: None (occurrence: None)
  Receive Date: 20091119
  Receipt Date: 20091112
  Transmission Date: 20100525
  Serious: Yes (Hospitalization)
  Sender: FDA-Public Use
  Company Number: FR-ROCHE-668398

PATIENT
  Sex: Male

DRUGS (2)
  1. TAMIFLU [Suspect]
     Route: 048
     Dates: start: 20090926, end: 20090928
  2. AUGMENTIN [Suspect]
     Dosage: STRENGTH REPORTED 100 MG/12.50 MG/ML POWDER FOR DRINKABLE SOLUTION
     Route: 048
     Dates: start: 20090926, end: 20090928

REACTIONS (1)
  - DIARRHOEA HAEMORRHAGIC [None]
